FAERS Safety Report 8557829-8 (Version None)
Quarter: 2012Q3

REPORT INFORMATION
  Report Type: 
  Country: None (occurrence: None)
  Receive Date: 20120801
  Receipt Date: 20120724
  Transmission Date: 20120928
  Serious: Yes (Death, Hospitalization)
  Sender: FDA-Public Use
  Company Number: US-GLAXOSMITHKLINE-A0979568A

PATIENT
  Age: 77 Year
  Sex: Male

DRUGS (1)
  1. PROMACTA [Suspect]
     Indication: AUTOIMMUNE THROMBOCYTOPENIA
     Dosage: 50MG PER DAY
     Route: 048

REACTIONS (3)
  - DEATH [None]
  - AUTOIMMUNE THROMBOCYTOPENIA [None]
  - CONDITION AGGRAVATED [None]
